FAERS Safety Report 26095804 (Version 1)
Quarter: 2025Q4

REPORT INFORMATION
  Report Type: Spontaneous
  Country: GB (occurrence: GB)
  Receive Date: 20251127
  Receipt Date: 20251127
  Transmission Date: 20260118
  Serious: Yes (Other)
  Sender: AMGEN
  Company Number: None

PATIENT
  Age: 71 Year
  Sex: Female
  Weight: 60 kg

DRUGS (6)
  1. ROMOSOZUMAB [Suspect]
     Active Substance: ROMOSOZUMAB
     Indication: Product used for unknown indication
     Dosage: UNK
     Route: 065
  2. BUDESONIDE\FORMOTEROL FUMARATE [Concomitant]
     Active Substance: BUDESONIDE\FORMOTEROL FUMARATE
     Indication: Product used for unknown indication
     Dosage: 1 DOSAGE FORM, 2X/DAY (BID)
     Route: 055
     Dates: start: 20250922
  3. CLOBETASOL PROPIONATE [Concomitant]
     Active Substance: CLOBETASOL PROPIONATE
     Indication: Skin irritation
     Dosage: APPLY ONCE DAILY TO ANY SKIN IRRITATION OR BLIS...
     Route: 065
     Dates: start: 20190912
  4. ETORICOXIB [Concomitant]
     Active Substance: ETORICOXIB
     Indication: Bone pain
     Dosage: 1 DOSAGE FORM, ONCE DAILY (QD)
     Route: 065
     Dates: start: 20220207
  5. OMEPRAZOLE [Concomitant]
     Active Substance: OMEPRAZOLE
     Indication: Ill-defined disorder
     Dosage: 1 DOSAGE FORM, ONCE DAILY (QD) (IF NEEDED TO PROTEC..)
     Route: 065
     Dates: start: 20220207
  6. RISEDRONATE SODIUM [Concomitant]
     Active Substance: RISEDRONATE SODIUM
     Indication: Ill-defined disorder
     Dosage: 1 DOSAGE FORM, WEEKLY (QW) (ON AN EMPTY STOMACH, WITH PLENT...  )
     Route: 065
     Dates: start: 20241018, end: 20250922

REACTIONS (4)
  - Wheezing [Recovered/Resolved]
  - Injection site vesicles [Recovered/Resolved]
  - Injection site swelling [Recovered/Resolved]
  - Dyspnoea [Recovered/Resolved]
